FAERS Safety Report 8204054-6 (Version None)
Quarter: 2012Q1

REPORT INFORMATION
  Report Type: 
  Country: None (occurrence: None)
  Receive Date: 20120313
  Receipt Date: 20120306
  Transmission Date: 20120608
  Serious: No
  Sender: FDA-Public Use
  Company Number: US-PFIZER INC-2012060979

PATIENT
  Sex: Female

DRUGS (3)
  1. TRAZODONE [Concomitant]
     Dosage: 75-150MG (AS NEEDED) DAILY
  2. SEROQUEL [Concomitant]
     Dosage: 200 MG, DAILY
  3. EFFEXOR [Suspect]
     Indication: DEPRESSION
     Dosage: 75 MG, DAILY
     Dates: start: 20111201

REACTIONS (1)
  - AMMONIA INCREASED [None]
